FAERS Safety Report 7281890-4 (Version None)
Quarter: 2011Q1

REPORT INFORMATION
  Report Type: 
  Country: None (occurrence: None)
  Receive Date: 20110208
  Receipt Date: 20110203
  Transmission Date: 20110831
  Serious: Yes (Hospitalization, Other)
  Sender: FDA-Public Use
  Company Number: FR-ABBOTT-11P-056-0702528-00

PATIENT
  Sex: Female
  Weight: 82 kg

DRUGS (18)
  1. CO-APROVEL [Concomitant]
     Indication: PRODUCT USED FOR UNKNOWN INDICATION
  2. CORTICOTHERAPY [Concomitant]
     Indication: PRODUCT USED FOR UNKNOWN INDICATION
  3. EFFERALGAN CODEINE [Concomitant]
     Indication: PRODUCT USED FOR UNKNOWN INDICATION
  4. RIFINAH [Concomitant]
     Indication: PRODUCT USED FOR UNKNOWN INDICATION
     Dates: start: 20060401
  5. HUMIRA [Suspect]
     Route: 058
     Dates: start: 20100401, end: 20110110
  6. CORTANCYL [Concomitant]
     Dates: start: 20080101
  7. VENLAFAXINE [Suspect]
     Indication: DEPRESSION
     Dosage: 75MG DAILY, 2 IN 1 DAY
     Route: 048
     Dates: end: 20110111
  8. KETOPROFEN [Concomitant]
     Indication: PRODUCT USED FOR UNKNOWN INDICATION
  9. AGOMELATINE [Concomitant]
     Indication: PRODUCT USED FOR UNKNOWN INDICATION
     Dosage: 250MG, 2 IN 1 DAY
  10. ESOMEPRAZOLE [Concomitant]
     Indication: PRODUCT USED FOR UNKNOWN INDICATION
     Dosage: 20MG DAILY
  11. LORAZEPAM [Concomitant]
     Indication: PRODUCT USED FOR UNKNOWN INDICATION
  12. CORTANCYL [Concomitant]
     Indication: PRODUCT USED FOR UNKNOWN INDICATION
     Dates: start: 20040201, end: 20050101
  13. CORTANCYL [Concomitant]
     Dates: start: 20050101
  14. CORTANCYL [Concomitant]
     Dosage: {5MG/D
  15. CORTICOTHERAPY [Concomitant]
     Dosage: DECREASED
  16. BROMAZEPAM [Concomitant]
     Indication: PRODUCT USED FOR UNKNOWN INDICATION
     Dosage: HALF A TABLET 3 TIMES A DAY
  17. CORTICOTHERAPY [Concomitant]
     Dates: end: 20091001
  18. HUMIRA [Suspect]
     Indication: RHEUMATOID ARTHRITIS
     Route: 058
     Dates: start: 20060401, end: 20090601

REACTIONS (12)
  - BURSITIS [None]
  - HYPOXIA [None]
  - ARTHRITIS INFECTIVE [None]
  - DYSPNOEA [None]
  - INTERSTITIAL LUNG DISEASE [None]
  - ARTHRALGIA [None]
  - LOCALISED INFECTION [None]
  - OSTEOARTHRITIS [None]
  - ESCHERICHIA INFECTION [None]
  - PULMONARY EMBOLISM [None]
  - URINARY TRACT INFECTION [None]
  - EMPHYSEMA [None]
